FAERS Safety Report 6676815-6 (Version None)
Quarter: 2010Q2

REPORT INFORMATION
  Report Type: 
  Country: None (occurrence: None)
  Receive Date: 20100412
  Receipt Date: 20100402
  Transmission Date: 20101027
  Serious: Yes (Hospitalization)
  Sender: FDA-Public Use
  Company Number: US-ROCHE-695696

PATIENT
  Sex: Female

DRUGS (3)
  1. BEVACIZUMAB [Suspect]
     Dosage: MAX = 6 CYCLE, OVER 30-90 MIN ON DAY 1 OF CYCLES 2-6
     Route: 042
     Dates: start: 20091229
  2. PACLITAXEL [Suspect]
     Dosage: MAX = 6 CYCLES; OVER 3 HOURS ON DAY 1
     Route: 042
     Dates: start: 20091229
  3. CARBOPLATIN [Suspect]
     Dosage: FORM: INFUSION, AUC: 6 ON DAY 1
     Route: 033
     Dates: start: 20091229

REACTIONS (5)
  - HYPERMAGNESAEMIA [None]
  - HYPOCALCAEMIA [None]
  - NAUSEA [None]
  - SMALL INTESTINAL OBSTRUCTION [None]
  - VOMITING [None]
